FAERS Safety Report 5542893-0 (Version None)
Quarter: 2007Q4

REPORT INFORMATION
  Report Type: 
  Country: None (occurrence: None)
  Receive Date: 20071210
  Receipt Date: 20071114
  Transmission Date: 20080405
  Serious: Yes (Other)
  Sender: FDA-Public Use
  Company Number: CN-GILEAD-E2B_00000025

PATIENT
  Age: 52 Year
  Sex: Male

DRUGS (1)
  1. HEPSERA [Suspect]
     Indication: HEPATITIS B
     Route: 048
     Dates: start: 20070401

REACTIONS (5)
  - BLOOD CREATININE INCREASED [None]
  - DIPLOPIA [None]
  - MUSCULAR WEAKNESS [None]
  - NOCTURIA [None]
  - VISION BLURRED [None]
